FAERS Safety Report 23441875 (Version 1)
Quarter: 2024Q1

REPORT INFORMATION
  Report Type: Spontaneous
  Country: US (occurrence: None)
  Receive Date: 20240125
  Receipt Date: 20240125
  Transmission Date: 20240410
  Serious: Yes (Other)
  Sender: FDA-Public Use
  Company Number: 2024A019405

PATIENT
  Age: 1 Month

DRUGS (1)
  1. BEYFORTUS [Suspect]
     Active Substance: NIRSEVIMAB-ALIP
     Indication: Immunisation
     Dosage: 0.5 ML, TOTAL0.5ML ONCE/SINGLE ADMINISTRATION

REACTIONS (1)
  - Bronchiolitis [Unknown]
